FAERS Safety Report 19068355 (Version 1)
Quarter: 2021Q1

REPORT INFORMATION
  Report Type: Spontaneous
  Country: US (occurrence: US)
  Receive Date: 20210329
  Receipt Date: 20210329
  Transmission Date: 20210420
  Serious: Yes (Hospitalization, Other)
  Sender: FDA-Public Use
  Company Number: US-PFIZER INC-2021302263

PATIENT
  Age: 57 Year
  Sex: Female
  Weight: 68.04 kg

DRUGS (2)
  1. XELJANZ [Suspect]
     Active Substance: TOFACITINIB CITRATE
     Indication: RHEUMATOID ARTHRITIS
     Dosage: 1 DF, DAILY
     Route: 048
     Dates: end: 20200507
  2. PREDNISONE. [Concomitant]
     Active Substance: PREDNISONE
     Dosage: 4 MG, DAILY

REACTIONS (9)
  - Pyrexia [Recovered/Resolved]
  - Muscular weakness [Not Recovered/Not Resolved]
  - Immune system disorder [Unknown]
  - Drug ineffective [Unknown]
  - Ulna fracture [Recovered/Resolved with Sequelae]
  - Upper limb fracture [Recovered/Resolved with Sequelae]
  - Radius fracture [Unknown]
  - Joint range of motion decreased [Not Recovered/Not Resolved]
  - Limb discomfort [Recovered/Resolved with Sequelae]

NARRATIVE: CASE EVENT DATE: 20200510
